FAERS Safety Report 14985230 (Version 3)
Quarter: 2019Q2

REPORT INFORMATION
  Report Type: Report from Study
  Country: CA (occurrence: CA)
  Receive Date: 20180607
  Receipt Date: 20190412
  Transmission Date: 20190711
  Serious: Yes (Death)
  Sender: FDA-Public Use
  Company Number: CA-HLSUS-2018-CA-000857

PATIENT
  Age: 81 Year
  Sex: Female

DRUGS (1)
  1. GEN-CLOZAPINE (MYLAN) [Suspect]
     Active Substance: CLOZAPINE
     Indication: SCHIZOPHRENIA
     Dates: start: 20031017

REACTIONS (7)
  - Lower limb fracture [Unknown]
  - Lung neoplasm malignant [Unknown]
  - Pulmonary mass [Unknown]
  - Pneumonia [Unknown]
  - Respiratory failure [Unknown]
  - Death [Fatal]
  - Chronic obstructive pulmonary disease [Unknown]
